FAERS Safety Report 11795730 (Version 1)
Quarter: 2015Q4

REPORT INFORMATION
  Report Type: Spontaneous
  Country: US (occurrence: US)
  Receive Date: 20151202
  Receipt Date: 20151202
  Transmission Date: 20160305
  Serious: No
  Sender: FDA-Public Use
  Company Number: ALCN2015US001534

PATIENT
  Sex: Male

DRUGS (5)
  1. PREDNISOLONE ACETATE. [Suspect]
     Active Substance: PREDNISOLONE ACETATE
     Indication: RETINAL OPERATION
     Dosage: 1 GTT, QID
     Route: 047
     Dates: start: 20150226
  2. NEOMYCIN AND POLYMYXIN B SULFATES AND DEXAMETHASONE [Suspect]
     Active Substance: DEXAMETHASONE\NEOMYCIN SULFATE\POLYMYXIN B SULFATE
     Indication: RETINAL OPERATION
     Dosage: 1 GTT, QID
     Route: 047
     Dates: start: 20150226
  3. LATANOPROST. [Suspect]
     Active Substance: LATANOPROST
     Indication: RETINAL OPERATION
     Dosage: 1 GTT, QHS
     Route: 047
     Dates: start: 20150226
  4. TOBRAMYCIN. [Suspect]
     Active Substance: TOBRAMYCIN
     Indication: RETINAL OPERATION
     Dosage: 1 GTT, Q4H
     Route: 047
     Dates: start: 20150226
  5. DORZOLAMIDE [Suspect]
     Active Substance: DORZOLAMIDE
     Indication: RETINAL OPERATION
     Dosage: 1 GTT, BID
     Route: 047
     Dates: start: 20150226

REACTIONS (3)
  - Eye pain [Not Recovered/Not Resolved]
  - Lacrimation increased [Not Recovered/Not Resolved]
  - Eye swelling [Not Recovered/Not Resolved]
